FAERS Safety Report 7200388-2 (Version None)
Quarter: 2010Q4

REPORT INFORMATION
  Report Type: 
  Country: None (occurrence: None)
  Receive Date: 20101214
  Receipt Date: 20101207
  Transmission Date: 20110411
  Serious: Yes (Hospitalization)
  Sender: FDA-Public Use
  Company Number: 1000017632

PATIENT
  Age: 47 Year
  Sex: Female

DRUGS (5)
  1. BYSTOLIC [Suspect]
     Indication: HYPERTENSION
     Dosage: 10 MG (10 MG,1 IN 1 D), ORAL
     Route: 048
     Dates: start: 20100701
  2. PLAVIX [Concomitant]
  3. SIMVASTATIN [Concomitant]
  4. ASPIRIN [Concomitant]
  5. SYNTHROID (LEVOTHYROXINE SODIUM) (LEVOTHYROXINE SODIUM) [Concomitant]

REACTIONS (4)
  - CHEST PAIN [None]
  - OEDEMA PERIPHERAL [None]
  - PAIN IN JAW [None]
  - SWELLING FACE [None]
